FAERS Safety Report 25239126 (Version 1)
Quarter: 2025Q2

REPORT INFORMATION
  Report Type: Spontaneous
  Country: VN (occurrence: VN)
  Receive Date: 20250425
  Receipt Date: 20250425
  Transmission Date: 20250716
  Serious: Yes (Other)
  Sender: BAYER HEALTHCARE PHARMACEUTICALS INC.
  Company Number: VN-BAYER-2025A056314

PATIENT
  Age: 15 Year
  Sex: Female
  Weight: 50 kg

DRUGS (1)
  1. ULTRAVIST [Suspect]
     Active Substance: IOPROMIDE
     Indication: Magnetic resonance imaging
     Route: 042
     Dates: start: 20250418, end: 20250418

REACTIONS (4)
  - Seizure [Unknown]
  - Fatigue [Unknown]
  - Dyspnoea [Unknown]
  - Mydriasis [Unknown]

NARRATIVE: CASE EVENT DATE: 20250418
